FAERS Safety Report 6794522-6 (Version None)
Quarter: 2010Q2

REPORT INFORMATION
  Report Type: 
  Country: None (occurrence: None)
  Receive Date: 20100625
  Receipt Date: 20090915
  Transmission Date: 20101027
  Serious: No
  Sender: FDA-Public Use
  Company Number: A0807429A

PATIENT
  Age: 38 Year
  Sex: Female

DRUGS (3)
  1. VENTOLIN [Suspect]
     Dosage: 1PUFF SINGLE DOSE
     Route: 055
     Dates: start: 19941001, end: 19941001
  2. PREVACID [Concomitant]
  3. ADVIL LIQUI-GELS [Concomitant]

REACTIONS (1)
  - PALPITATIONS [None]
